FAERS Safety Report 20609859 (Version 1)
Quarter: 2022Q1

REPORT INFORMATION
  Report Type: Spontaneous
  Country: FR (occurrence: FR)
  Receive Date: 20220318
  Receipt Date: 20220318
  Transmission Date: 20220424
  Serious: Yes (Hospitalization)
  Sender: FDA-Public Use
  Company Number: None

PATIENT
  Age: 52 Year
  Sex: Male
  Weight: 65 kg

DRUGS (1)
  1. DESFERAL [Suspect]
     Active Substance: DEFEROXAMINE MESYLATE
     Indication: Hyperferritinaemia
     Dosage: 3G/J   5 JOURS PAR SEMAINE
     Route: 058
     Dates: start: 20220121, end: 20220303

REACTIONS (2)
  - Epilepsy [Recovered/Resolved]
  - Injection site reaction [Recovering/Resolving]

NARRATIVE: CASE EVENT DATE: 20220306
